FAERS Safety Report 5331554-9 (Version None)
Quarter: 2007Q2

REPORT INFORMATION
  Report Type: 
  Country: None (occurrence: None)
  Receive Date: 20070522
  Receipt Date: 20070510
  Transmission Date: 20071010
  Serious: Yes (Death, Hospitalization, Other)
  Sender: FDA-Public Use
  Company Number: AU-PFIZER INC-2007020099

PATIENT
  Sex: Male
  Weight: 94 kg

DRUGS (4)
  1. SUTENT [Suspect]
     Indication: METASTATIC RENAL CELL CARCINOMA
     Route: 048
     Dates: start: 20070227, end: 20070310
  2. ATENOLOL [Concomitant]
     Route: 048
  3. SPIRIVA [Concomitant]
     Route: 048
  4. IRBESARTAN [Concomitant]
     Route: 048

REACTIONS (17)
  - ACUTE MYOCARDIAL INFARCTION [None]
  - ALTERED STATE OF CONSCIOUSNESS [None]
  - CARDIAC DISORDER [None]
  - CHEST DISCOMFORT [None]
  - CHILLS [None]
  - CONVULSION [None]
  - CORONARY ARTERY DISEASE [None]
  - DEPRESSED LEVEL OF CONSCIOUSNESS [None]
  - DIARRHOEA [None]
  - DYSPNOEA [None]
  - ELECTROCARDIOGRAM T WAVE INVERSION [None]
  - HYPERTENSION [None]
  - HYPOTENSION [None]
  - PYREXIA [None]
  - RENAL IMPAIRMENT [None]
  - TACHYCARDIA [None]
  - VOMITING [None]
